FAERS Safety Report 11241792 (Version 3)
Quarter: 2015Q3

REPORT INFORMATION
  Report Type: Spontaneous
  Country: US (occurrence: US)
  Receive Date: 20150706
  Receipt Date: 20150817
  Transmission Date: 20151125
  Serious: Yes (Death, Life-Threatening, Hospitalization, Other)
  Sender: FDA-Public Use
  Company Number: US-MERCK-1507USA001066

PATIENT
  Age: 82 Year
  Sex: Female

DRUGS (10)
  1. VITAMINS (UNSPECIFIED) [Concomitant]
     Active Substance: VITAMINS
     Dosage: 1 DF, QD
     Route: 048
  2. VERAPAMIL [Concomitant]
     Active Substance: VERAPAMIL HYDROCHLORIDE
     Dosage: 240 MG, BID
     Route: 048
  3. AMARYL [Concomitant]
     Active Substance: GLIMEPIRIDE
     Dosage: 1 MG, QD
     Route: 048
     Dates: end: 201506
  4. JANUVIA [Suspect]
     Active Substance: SITAGLIPTIN PHOSPHATE
     Indication: TYPE 2 DIABETES MELLITUS
     Dosage: 50 MG, ONCE DAILY
     Route: 048
     Dates: start: 20121106
  5. ASPIRIN. [Concomitant]
     Active Substance: ASPIRIN
     Dosage: 81 MG, QD
     Route: 048
  6. CALCIUM (UNSPECIFIED) (+) VITAMIN D (UNSPECIFIED) [Concomitant]
     Active Substance: CALCIUM CARBONATE\VITAMIN D
     Dosage: UNK, BID
     Route: 048
  7. TRAMADOL HYDROCHLORIDE. [Concomitant]
     Active Substance: TRAMADOL HYDROCHLORIDE
     Dosage: 50 MG, (Q6H) PRN
     Route: 048
  8. COLACE [Concomitant]
     Active Substance: DOCUSATE SODIUM
     Dosage: 100 MG, BID
     Route: 048
  9. AMARYL [Concomitant]
     Active Substance: GLIMEPIRIDE
     Dosage: 4 MG, BID
     Route: 048
     Dates: start: 201506
  10. LORTAB [Concomitant]
     Active Substance: ACETAMINOPHEN\HYDROCODONE BITARTRATE
     Dosage: UNK

REACTIONS (17)
  - Myocardial infarction [Fatal]
  - Acute kidney injury [Fatal]
  - Haematuria [Fatal]
  - Haemorrhagic anaemia [Fatal]
  - Hypoxic-ischaemic encephalopathy [Fatal]
  - Troponin increased [Fatal]
  - Sepsis [Fatal]
  - Cardiac arrest [Fatal]
  - Cervical myelopathy [Unknown]
  - Ischaemic hepatitis [Fatal]
  - Acute respiratory failure [Unknown]
  - Lactic acidosis [Fatal]
  - Cervical spinal stenosis [Unknown]
  - Hyperglycaemia [Unknown]
  - Metabolic acidosis [Fatal]
  - Multi-organ disorder [Fatal]
  - Lung infiltration [Unknown]

NARRATIVE: CASE EVENT DATE: 201506
